FAERS Safety Report 22740401 (Version 5)
Quarter: 2024Q3

REPORT INFORMATION
  Report Type: Spontaneous
  Country: US (occurrence: US)
  Receive Date: 20230724
  Receipt Date: 20240923
  Transmission Date: 20241017
  Serious: No
  Sender: BRISTOL MYERS SQUIBB
  Company Number: US-BRISTOL-MYERS SQUIBB COMPANY-2023-103224

PATIENT
  Age: 58 Year
  Sex: Male

DRUGS (3)
  1. POMALYST [Suspect]
     Active Substance: POMALIDOMIDE
     Indication: Plasma cell myeloma
     Route: 048
     Dates: start: 202306
  2. POMALYST [Suspect]
     Active Substance: POMALIDOMIDE
     Route: 048
     Dates: start: 202307
  3. POMALYST [Suspect]
     Active Substance: POMALIDOMIDE
     Route: 048

REACTIONS (14)
  - Fatigue [Unknown]
  - Dysphonia [Unknown]
  - Arthralgia [Unknown]
  - Visual impairment [Unknown]
  - Hypotension [Unknown]
  - Headache [Unknown]
  - Dizziness [Unknown]
  - Back pain [Unknown]
  - Nervousness [Unknown]
  - Irritability [Unknown]
  - Auditory disorder [Unknown]
  - Rash [Unknown]
  - Impaired healing [Unknown]
  - Skin abrasion [Unknown]
